FAERS Safety Report 8576760-5 (Version None)
Quarter: 2012Q3

REPORT INFORMATION
  Report Type: 
  Country: None (occurrence: None)
  Receive Date: 20120807
  Receipt Date: 19950823
  Transmission Date: 20120928
  Serious: Yes (Death)
  Sender: FDA-Public Use
  Company Number: US-ROCHE-1097720

PATIENT
  Sex: Male

DRUGS (5)
  1. LASIX [Concomitant]
  2. MORPHINE SULFATE [Concomitant]
  3. ACTIVASE [Suspect]
     Indication: MYOCARDIAL INFARCTION
  4. LOPRESSOR [Concomitant]
  5. NITROGLYCERIN [Concomitant]

REACTIONS (1)
  - DEATH [None]
